FAERS Safety Report 7871198-8 (Version None)
Quarter: 2011Q4

REPORT INFORMATION
  Report Type: 
  Country: None (occurrence: None)
  Receive Date: 20111003
  Receipt Date: 20101118
  Transmission Date: 20120403
  Serious: Yes (Other)
  Sender: FDA-Public Use
  Company Number: 255926USA

PATIENT
  Sex: Male

DRUGS (1)
  1. FLUOXETINE [Suspect]
     Dosage: (20 MG)

REACTIONS (4)
  - DRUG EFFECT DECREASED [None]
  - SUICIDAL IDEATION [None]
  - COMPLETED SUICIDE [None]
  - SLEEP DISORDER [None]
